FAERS Safety Report 7625695-0 (Version None)
Quarter: 2011Q3

REPORT INFORMATION
  Report Type: 
  Country: None (occurrence: None)
  Receive Date: 20110713
  Receipt Date: 20110628
  Transmission Date: 20111222
  Serious: Yes (Other)
  Sender: FDA-Public Use
  Company Number: B0731457A

PATIENT
  Age: 9 Year
  Sex: Female

DRUGS (2)
  1. CEFUROXIME SODIUM [Suspect]
     Indication: URINARY TRACT INFECTION
  2. PREDNISOLONE [Concomitant]

REACTIONS (1)
  - LEUKOCYTOCLASTIC VASCULITIS [None]
